FAERS Safety Report 20213922 (Version 2)
Quarter: 2021Q4

REPORT INFORMATION
  Report Type: Report from Study
  Country: CA (occurrence: CA)
  Receive Date: 20211221
  Receipt Date: 20211222
  Transmission Date: 20220303
  Serious: Yes (Death, Hospitalization)
  Sender: FDA-Public Use
  Company Number: CA-AstraZeneca-2021A881801

PATIENT
  Sex: Male

DRUGS (1)
  1. TRASTUZUMAB DERUXTECAN [Suspect]
     Active Substance: TRASTUZUMAB DERUXTECAN
     Indication: Breast cancer metastatic
     Dosage: 297 MG, ONCE EVERY 3 WK
     Route: 042
     Dates: start: 20211004

REACTIONS (3)
  - Metastases to central nervous system [Fatal]
  - Malignant neoplasm progression [Fatal]
  - Therapy cessation [Unknown]
